FAERS Safety Report 8086863-X (Version None)
Quarter: 2012Q1

REPORT INFORMATION
  Report Type: 
  Country: None (occurrence: None)
  Receive Date: 20120128
  Receipt Date: 20110520
  Transmission Date: 20120608
  Serious: No
  Sender: FDA-Public Use
  Company Number: US-ABBOTT-11P-163-0727098-00

PATIENT
  Sex: Male
  Weight: 104.87 kg

DRUGS (12)
  1. OXYCODONE HCL [Concomitant]
     Indication: PAIN
  2. FENTANYL [Concomitant]
     Indication: PAIN
  3. ARAVIA [Concomitant]
     Indication: RHEUMATOID ARTHRITIS
  4. HUMIRA [Suspect]
     Dates: start: 20110501
  5. OXYCODONE HCL [Concomitant]
     Indication: SPINAL COLUMN STENOSIS
  6. CYMBALTA [Concomitant]
     Indication: RHEUMATOID ARTHRITIS
  7. PLAQUENIL [Concomitant]
     Indication: RHEUMATOID ARTHRITIS
  8. AMRIX [Concomitant]
     Indication: INSOMNIA
  9. HUMIRA [Suspect]
     Indication: RHEUMATOID ARTHRITIS
     Dates: start: 20110201, end: 20110501
  10. LOVAZA [Concomitant]
     Indication: BLOOD CHOLESTEROL INCREASED
  11. INDOMETHACIN [Concomitant]
     Indication: RHEUMATOID ARTHRITIS
  12. LUNESTA [Concomitant]
     Indication: INSOMNIA

REACTIONS (1)
  - ARTHRALGIA [None]
